FAERS Safety Report 7541523-6 (Version None)
Quarter: 2011Q2

REPORT INFORMATION
  Report Type: 
  Country: None (occurrence: None)
  Receive Date: 20110613
  Receipt Date: 20110606
  Transmission Date: 20111010
  Serious: Yes (Death, Other)
  Sender: FDA-Public Use
  Company Number: CA-BRISTOL-MYERS SQUIBB COMPANY-15823511

PATIENT
  Age: 53 Year
  Sex: Male

DRUGS (3)
  1. HEPARIN SODIUM [Suspect]
  2. ETOPOSIDE [Suspect]
     Indication: LUNG ADENOCARCINOMA
     Dosage: DAYS 1 TO 3
     Route: 048
  3. CISPLATIN [Suspect]
     Indication: LUNG ADENOCARCINOMA
     Dosage: DAYS 1 TO 3
     Route: 042

REACTIONS (4)
  - MULTI-ORGAN FAILURE [None]
  - AORTIC THROMBOSIS [None]
  - RENAL ARTERY THROMBOSIS [None]
  - RENAL INFARCT [None]
